FAERS Safety Report 22325966 (Version 1)
Quarter: 2023Q2

REPORT INFORMATION
  Report Type: Report from Study
  Country: CA (occurrence: CA)
  Receive Date: 20230516
  Receipt Date: 20230516
  Transmission Date: 20230721
  Serious: Yes (Other)
  Sender: FDA-Public Use
  Company Number: CA-KOREA IPSEN Pharma-2022-30569

PATIENT
  Age: 80 Year
  Sex: Male

DRUGS (1)
  1. LANREOTIDE ACETATE [Suspect]
     Active Substance: LANREOTIDE ACETATE
     Indication: Gastroenteropancreatic neuroendocrine tumour disease
     Route: 058
     Dates: start: 20090915

REACTIONS (9)
  - Psoas abscess [Unknown]
  - Hydronephrosis [Unknown]
  - Jaundice cholestatic [Unknown]
  - Bile duct stone [Not Recovered/Not Resolved]
  - Carcinoid tumour of the stomach [Unknown]
  - Metastases to liver [Unknown]
  - Cholelithiasis [Unknown]
  - Prostatic disorder [Recovering/Resolving]
  - Glomerular filtration rate abnormal [Unknown]

NARRATIVE: CASE EVENT DATE: 20210101
